FAERS Safety Report 8421193-5 (Version None)
Quarter: 2012Q2

REPORT INFORMATION
  Report Type: 
  Country: None (occurrence: None)
  Receive Date: 20120608
  Receipt Date: 20120529
  Transmission Date: 20120825
  Serious: Yes (Other)
  Sender: FDA-Public Use
  Company Number: NL-JNJFOC-20120520362

PATIENT
  Sex: Female
  Weight: 90 kg

DRUGS (1)
  1. PALIPERIDONE [Suspect]
     Indication: AUTISM
     Route: 030
     Dates: start: 20120418, end: 20120426

REACTIONS (7)
  - PYREXIA [None]
  - MYALGIA [None]
  - INSOMNIA [None]
  - DIZZINESS [None]
  - HEADACHE [None]
  - NAUSEA [None]
  - BREAST DISCHARGE [None]
